FAERS Safety Report 16556367 (Version 2)
Quarter: 2019Q3

REPORT INFORMATION
  Report Type: Spontaneous
  Country: US (occurrence: US)
  Receive Date: 20190710
  Receipt Date: 20190717
  Transmission Date: 20191004
  Serious: No
  Sender: FDA-Public Use
  Company Number: US-TEVA-2019-US-1072566

PATIENT
  Sex: Female

DRUGS (5)
  1. MUPIROCIN. [Suspect]
     Active Substance: MUPIROCIN
     Indication: RASH
     Dosage: 2 %
     Route: 061
     Dates: start: 20190629, end: 20190630
  2. IBUPROFEN. [Concomitant]
     Active Substance: IBUPROFEN
  3. TYLENOL [Concomitant]
     Active Substance: ACETAMINOPHEN
  4. METRONIDAZOLE. [Suspect]
     Active Substance: METRONIDAZOLE
     Indication: BACTERIAL INFECTION
     Dosage: 500 MG
     Route: 065
     Dates: start: 20190629, end: 20190630
  5. DOXYCYCLINE. [Concomitant]
     Active Substance: DOXYCYCLINE

REACTIONS (3)
  - Erythema [Recovering/Resolving]
  - Peripheral swelling [Recovering/Resolving]
  - Feeling abnormal [Recovering/Resolving]

NARRATIVE: CASE EVENT DATE: 20190629
